FAERS Safety Report 12037380 (Version 1)
Quarter: 2016Q1

REPORT INFORMATION
  Report Type: Report from Study
  Country: US (occurrence: US)
  Receive Date: 20160208
  Receipt Date: 20160208
  Transmission Date: 20160526
  Serious: Yes (Other)
  Sender: FDA-Public Use
  Company Number: US-ROCHE-1704923

PATIENT
  Age: 73 Year

DRUGS (2)
  1. ERLOTINIB [Suspect]
     Active Substance: ERLOTINIB
     Indication: SQUAMOUS CELL CARCINOMA OF HEAD AND NECK
     Dosage: ON 02/SEP/2003, THE PATIENT RECEIVED LAST DOSE OF BEVACIZUMAB PRIOR TO SAE
     Route: 048
     Dates: start: 20030513
  2. BEVACIZUMAB [Suspect]
     Active Substance: BEVACIZUMAB
     Indication: SQUAMOUS CELL CARCINOMA OF HEAD AND NECK
     Dosage: ON 05/AUG/2003, THE PATIENT RECEIVED LAST DOSE OF BEVACIZUMAB PRIOR TO SAE?ON DAY 1 , EVERY 21 DAYS
     Route: 042
     Dates: start: 20030513

REACTIONS (2)
  - Alanine aminotransferase increased [Recovered/Resolved]
  - Blood alkaline phosphatase increased [Recovered/Resolved]

NARRATIVE: CASE EVENT DATE: 20030826
